FAERS Safety Report 6690525-0 (Version None)
Quarter: 2010Q2

REPORT INFORMATION
  Report Type: 
  Country: None (occurrence: None)
  Receive Date: 20100421
  Receipt Date: 20100414
  Transmission Date: 20101027
  Serious: Yes (Other)
  Sender: FDA-Public Use
  Company Number: JP-MERCK-1004USA02946

PATIENT
  Age: 70 Year
  Sex: Female

DRUGS (13)
  1. JANUVIA [Suspect]
     Indication: DIABETES MELLITUS
     Route: 048
     Dates: start: 20100407, end: 20100410
  2. GLIMICRON [Concomitant]
     Indication: DIABETES MELLITUS
     Route: 048
  3. GLUFAST [Concomitant]
     Indication: DIABETES MELLITUS
     Route: 048
  4. SUNRYTHM [Concomitant]
     Indication: ATRIAL FIBRILLATION
     Route: 048
  5. BASEN OD [Concomitant]
     Indication: DIABETES MELLITUS
     Route: 048
  6. ARTANE [Concomitant]
     Indication: PARKINSON'S DISEASE
     Route: 048
  7. PRAMIPEXOLE DIHYDROCHLORIDE [Concomitant]
     Indication: PARKINSON'S DISEASE
     Route: 048
  8. TAKEPRON [Concomitant]
     Indication: GASTRIC ULCER
     Route: 048
  9. LENDORMIN [Concomitant]
     Indication: INSOMNIA
     Route: 048
  10. SYMMETREL [Concomitant]
     Indication: PARKINSON'S DISEASE
     Route: 048
  11. PLAVIX [Concomitant]
     Indication: CEREBROVASCULAR ACCIDENT PROPHYLAXIS
     Route: 048
  12. PARLODEL [Concomitant]
     Indication: PARKINSON'S DISEASE
     Route: 048
  13. MENESIT [Concomitant]
     Indication: PARKINSON'S DISEASE
     Route: 048

REACTIONS (1)
  - ATONIC SEIZURES [None]
